FAERS Safety Report 15676108 (Version 1)
Quarter: 2018Q4

REPORT INFORMATION
  Report Type: Spontaneous
  Country: US (occurrence: US)
  Receive Date: 20181130
  Receipt Date: 20181130
  Transmission Date: 20190205
  Serious: No
  Sender: FDA-Public Use
  Company Number: US-BIOGEN-2018BI00663480

PATIENT
  Sex: Female

DRUGS (2)
  1. AVONEX [Suspect]
     Active Substance: INTERFERON BETA-1A
     Indication: MULTIPLE SCLEROSIS
     Route: 065
     Dates: start: 20030826, end: 20081001
  2. AVONEX [Suspect]
     Active Substance: INTERFERON BETA-1A
     Dosage: USED AUTO-INJECTOR PEN
     Route: 065

REACTIONS (2)
  - Venous injury [Recovered/Resolved]
  - Haemorrhage [Unknown]
